FAERS Safety Report 23217052 (Version 2)
Quarter: 2024Q1

REPORT INFORMATION
  Report Type: Report from Study
  Country: DE (occurrence: DE)
  Receive Date: 20231122
  Receipt Date: 20240130
  Transmission Date: 20240410
  Serious: Yes (Hospitalization)
  Sender: FDA-Public Use
  Company Number: DE-002147023-NVSC2022DE277448

PATIENT
  Sex: Female

DRUGS (3)
  1. ILARIS [Suspect]
     Active Substance: CANAKINUMAB
     Indication: Foetal exposure during pregnancy
     Dosage: UNK, MATERNAL DOSE: 360 MG ON 6 FEB 2020
     Route: 064
  2. ILARIS [Suspect]
     Active Substance: CANAKINUMAB
     Dosage: UNK, MATERNAL DOSE: 360 MG (LATEST ILARIS APPLICATION) ON 02 FEB 2022
     Route: 064
  3. ILARIS [Suspect]
     Active Substance: CANAKINUMAB
     Dosage: UNK, MATERNAL DOSE: 360 MG ON 27 APR 2022
     Route: 064

REACTIONS (6)
  - Infection [Unknown]
  - Respiratory syncytial virus infection [Unknown]
  - Motor developmental delay [Unknown]
  - Foetal exposure during pregnancy [Unknown]
  - Premature baby [Unknown]
  - COVID-19 [Unknown]

NARRATIVE: CASE EVENT DATE: 20220101
